FAERS Safety Report 11535764 (Version 3)
Quarter: 2015Q4

REPORT INFORMATION
  Report Type: Spontaneous
  Country: JP (occurrence: JP)
  Receive Date: 20150922
  Receipt Date: 20151009
  Transmission Date: 20160304
  Serious: No
  Sender: FDA-Public Use
  Company Number: JP-ASTRAZENECA-2015SE77773

PATIENT
  Age: 424 Month
  Sex: Female
  Weight: 78 kg

DRUGS (9)
  1. MIRTAZAPINE. [Concomitant]
     Active Substance: MIRTAZAPINE
     Route: 065
  2. SILECE [Concomitant]
     Active Substance: FLUNITRAZEPAM
     Route: 065
  3. ZOLADEX [Suspect]
     Active Substance: GOSERELIN ACETATE
     Indication: BREAST CANCER RECURRENT
     Route: 058
     Dates: start: 201209
  4. NAUZELIN [Concomitant]
     Active Substance: DOMPERIDONE
     Route: 065
  5. DEPAS [Concomitant]
     Active Substance: ETIZOLAM
     Route: 065
  6. NOLVADEX [Concomitant]
     Active Substance: TAMOXIFEN CITRATE
     Route: 048
  7. TASMOLIN [Concomitant]
     Active Substance: BIPERIDEN
     Route: 065
  8. ZYPREXA [Concomitant]
     Active Substance: OLANZAPINE
     Route: 065
  9. LOXONIN [Concomitant]
     Active Substance: LOXOPROFEN SODIUM
     Route: 065

REACTIONS (1)
  - Tremor [Recovering/Resolving]

NARRATIVE: CASE EVENT DATE: 201212
